FAERS Safety Report 7949545-8 (Version None)
Quarter: 2011Q4

REPORT INFORMATION
  Report Type: 
  Country: None (occurrence: None)
  Receive Date: 20111130
  Receipt Date: 20111121
  Transmission Date: 20120403
  Serious: Yes (Hospitalization)
  Sender: FDA-Public Use
  Company Number: US-BAYER-2011-066621

PATIENT
  Age: 34 Year
  Sex: Female
  Weight: 77.098 kg

DRUGS (6)
  1. MAXZIDE [Concomitant]
  2. TORADOL [Concomitant]
     Indication: PAIN
     Dosage: UNK UNK, PRN
  3. ALBUTEROL [Concomitant]
     Indication: ASTHMA
     Dosage: UNK UNK, PRN
  4. PREVACID [Concomitant]
  5. BENTYL [Concomitant]
  6. YAZ [Suspect]
     Indication: CONTRACEPTION
     Dosage: UNK
     Dates: start: 20080311, end: 20080806

REACTIONS (7)
  - CHOLELITHIASIS [None]
  - DEFORMITY [None]
  - CHOLECYSTITIS ACUTE [None]
  - ABDOMINAL PAIN [None]
  - ANXIETY [None]
  - INJURY [None]
  - PAIN [None]
